FAERS Safety Report 4840630-6 (Version None)
Quarter: 2005Q4

REPORT INFORMATION
  Report Type: 
  Country: None (occurrence: None)
  Receive Date: 20051129
  Receipt Date: 20051129
  Transmission Date: 20060501
  Serious: No
  Sender: FDA-Public Use
  Company Number: None

PATIENT
  Age: 21 Year
  Sex: Female

DRUGS (1)
  1. CAMILA [Suspect]
     Indication: CONTRACEPTION
     Dosage: 1 TABLET CONTINUOUS-^DAILY- PO
     Route: 048
     Dates: start: 20050806, end: 20051128

REACTIONS (3)
  - CIRCUMSTANCE OR INFORMATION CAPABLE OF LEADING TO MEDICATION ERROR [None]
  - DRUG DOSE OMISSION [None]
  - MEDICATION ERROR [None]
